FAERS Safety Report 21998171 (Version 2)
Quarter: 2023Q1

REPORT INFORMATION
  Report Type: Other
  Country: PK (occurrence: None)
  Receive Date: 20230216
  Receipt Date: 20230227
  Transmission Date: 20230417
  Serious: Yes (Other)
  Sender: FDA-Public Use
  Company Number: PK-ROCHE-3202151

PATIENT
  Age: 48 Year
  Sex: Male

DRUGS (2)
  1. TECENTRIQ [Suspect]
     Active Substance: ATEZOLIZUMAB
     Indication: Hepatocellular carcinoma
     Dosage: TECENTRIQ 1200MG FOR 6 CYCLES 3 WEEKLY -AS PER PROTOCOL
     Route: 042
     Dates: start: 20220825
  2. AVASTIN [Suspect]
     Active Substance: BEVACIZUMAB
     Indication: Hepatocellular carcinoma
     Dosage: AVASTIN 800MG FOR 6 CYCLES 3 WEEKLY -AS PER PROTOCOL
     Route: 042
     Dates: start: 20230131

REACTIONS (2)
  - Intercepted product prescribing error [Unknown]
  - Non-small cell lung cancer metastatic [Unknown]

NARRATIVE: CASE EVENT DATE: 20230131
